FAERS Safety Report 14261503 (Version 2)
Quarter: 2017Q4

REPORT INFORMATION
  Report Type: Report from Study
  Country: NL (occurrence: NL)
  Receive Date: 20171208
  Receipt Date: 20171213
  Transmission Date: 20180321
  Serious: Yes (Hospitalization)
  Sender: FDA-Public Use
  Company Number: NL-ROCHE-2016580

PATIENT
  Age: 80 Year
  Sex: Female
  Weight: 55.7 kg

DRUGS (5)
  1. PREDNISONE. [Suspect]
     Active Substance: PREDNISONE
     Indication: MANTLE CELL LYMPHOMA
     Dosage: ADMINISTERED IN 3 WEEK CYCLES FOR 3 CYCLES: AS PER PROTOCOL
     Route: 065
     Dates: start: 20170710
  2. RITUXIMAB. [Suspect]
     Active Substance: RITUXIMAB
     Indication: MANTLE CELL LYMPHOMA
     Dosage: ADMINISTERED IN 3 WEEK CYCLES FOR 3 CYCLES: AS PER PROTOCOL
     Route: 042
     Dates: start: 20170710
  3. VINCRISTINE [Suspect]
     Active Substance: VINCRISTINE
     Indication: MANTLE CELL LYMPHOMA
     Dosage: ADMINISTERED IN 3 WEEK CYCLES FOR 3 CYCLES: AS PER PROTOCOL
     Route: 065
     Dates: start: 20170710
  4. DOXORUBICIN [Suspect]
     Active Substance: DOXORUBICIN
     Indication: MANTLE CELL LYMPHOMA
     Dosage: ADMINISTERED IN 3 WEEK CYCLES FOR 3 CYCLES: AS PER PROTOCOL
     Route: 065
     Dates: start: 20170710
  5. CYCLOPHOSPHAMIDE. [Suspect]
     Active Substance: CYCLOPHOSPHAMIDE
     Indication: MANTLE CELL LYMPHOMA
     Dosage: ADMINISTERED IN 3 WEEK CYCLES FOR 3 CYCLES: AS PER PROTOCOL
     Route: 065
     Dates: start: 20170710

REACTIONS (1)
  - Syncope [Recovered/Resolved]

NARRATIVE: CASE EVENT DATE: 20171023
